FAERS Safety Report 20216047 (Version 11)
Quarter: 2023Q1

REPORT INFORMATION
  Report Type: Report from Study
  Country: JP (occurrence: JP)
  Receive Date: 20211222
  Receipt Date: 20230201
  Transmission Date: 20230417
  Serious: Yes (Hospitalization, Other)
  Sender: FDA-Public Use
  Company Number: JP-BRISTOL-MYERS SQUIBB COMPANY-BMS-2021-138431

PATIENT
  Age: 7 Decade
  Sex: Male
  Weight: 67 kg

DRUGS (16)
  1. YERVOY [Suspect]
     Active Substance: IPILIMUMAB
     Indication: Metastatic renal cell carcinoma
     Dosage: 1 MG/KG
     Route: 041
     Dates: start: 20210210, end: 20210303
  2. YERVOY [Suspect]
     Active Substance: IPILIMUMAB
     Dosage: 67 MILLIGRAM
     Route: 041
     Dates: start: 20210303, end: 20210303
  3. OPDIVO [Suspect]
     Active Substance: NIVOLUMAB
     Indication: Metastatic renal cell carcinoma
     Dosage: 240 MILLIGRAM
     Route: 041
     Dates: start: 20210210, end: 20210210
  4. OPDIVO [Suspect]
     Active Substance: NIVOLUMAB
     Dosage: 240 MILLIGRAM
     Route: 041
     Dates: start: 20210303, end: 20210303
  5. PREDNISOLONE ACETATE [Suspect]
     Active Substance: PREDNISOLONE ACETATE
     Indication: Immune-mediated dermatitis
     Dosage: 30 MG/DAY, TWICE A DAY
     Route: 048
     Dates: start: 20210315, end: 20210321
  6. PREDNISOLONE ACETATE [Suspect]
     Active Substance: PREDNISOLONE ACETATE
     Indication: Hepatic function abnormal
     Dosage: 20 MG/DAY, TWICE A DAY
     Route: 048
     Dates: start: 20210322, end: 20210328
  7. PREDNISOLONE ACETATE [Suspect]
     Active Substance: PREDNISOLONE ACETATE
     Indication: Rash
     Dosage: 15 MG/DAY, TWICE A DAY
     Route: 048
     Dates: start: 20210329, end: 20210408
  8. PREDNISOLONE ACETATE [Suspect]
     Active Substance: PREDNISOLONE ACETATE
     Dosage: 10 MG/DAY, TWICE A DAY
     Route: 048
     Dates: start: 20210409, end: 20210414
  9. PREDNISOLONE ACETATE [Suspect]
     Active Substance: PREDNISOLONE ACETATE
     Dosage: 20 MG/DAY, TWICE A DAY
     Route: 048
     Dates: start: 20210415, end: 20210421
  10. PREDNISOLONE ACETATE [Suspect]
     Active Substance: PREDNISOLONE ACETATE
     Dosage: 40MG/DAY, 5 MORNING TABLETS, 3 TABLETS IN THE AFTERNOON
     Route: 048
     Dates: start: 20210422, end: 20210505
  11. PREDNISOLONE ACETATE [Suspect]
     Active Substance: PREDNISOLONE ACETATE
     Dosage: 30MG/DAY, 4 MORNING TABLETS, 2 TABLETS IN THE AFTERNOON
     Route: 048
     Dates: start: 20210506, end: 20210516
  12. PREDNISOLONE ACETATE [Suspect]
     Active Substance: PREDNISOLONE ACETATE
     Dosage: 25MG/DAY, 3 MORNING TABLETS, 2 TABLETS IN THE AFTERNOON
     Route: 048
     Dates: start: 20210517, end: 20210530
  13. PREDNISOLONE ACETATE [Suspect]
     Active Substance: PREDNISOLONE ACETATE
     Dosage: 20MG/DAY, 3 MORNING TABLETS, 1 TABLET IN AFTERNOON
     Route: 048
     Dates: start: 20210531, end: 20210613
  14. PREDNISOLONE ACETATE [Suspect]
     Active Substance: PREDNISOLONE ACETATE
     Dosage: 15 MG/DAY, TWICE DAILY, 2 TABLETS IN THE MORNING, 1 TABLE IN THE AFTERNOON
     Route: 048
     Dates: start: 20210614, end: 20210627
  15. PREDNISOLONE ACETATE [Suspect]
     Active Substance: PREDNISOLONE ACETATE
     Dosage: 10 MG/DAY, ONCE DAILY, IN THE MORNING
     Route: 048
     Dates: start: 20210628, end: 20210711
  16. PREDNISOLONE ACETATE [Suspect]
     Active Substance: PREDNISOLONE ACETATE
     Dosage: 5 MG/DAY, ONCE DAILY, IN THE MORNING
     Route: 048
     Dates: start: 20210712, end: 20210725

REACTIONS (3)
  - Hepatic function abnormal [Recovering/Resolving]
  - Folliculitis [Recovering/Resolving]
  - Immune-mediated dermatitis [Recovering/Resolving]

NARRATIVE: CASE EVENT DATE: 20210224
